FAERS Safety Report 24079863 (Version 1)
Quarter: 2024Q3

REPORT INFORMATION
  Report Type: Spontaneous
  Country: US (occurrence: US)
  Receive Date: 20240711
  Receipt Date: 20240711
  Transmission Date: 20241017
  Serious: No
  Sender: PFIZER
  Company Number: US-PFIZER INC-202400209291

PATIENT
  Age: 67 Year
  Sex: Female

DRUGS (10)
  1. PAXLOVID [Suspect]
     Active Substance: NIRMATRELVIR\RITONAVIR
     Indication: COVID-19 treatment
     Dosage: UNK
     Dates: start: 20240627, end: 20240701
  2. LOSARTAN [Concomitant]
     Active Substance: LOSARTAN
     Dates: start: 20240627, end: 20240708
  3. ALLOPURINOL [Concomitant]
     Active Substance: ALLOPURINOL
     Dosage: UNK
     Dates: start: 20240627, end: 20240708
  4. HYDROCHLOROTHIAZIDE [Concomitant]
     Active Substance: HYDROCHLOROTHIAZIDE
     Dosage: UNK
     Dates: start: 20240627, end: 20240708
  5. FISH OIL [Concomitant]
     Active Substance: FISH OIL
     Dosage: UNK
     Dates: start: 20240627, end: 20240708
  6. CINNAMON EXTRACT [CINNAMOMUM BURMANNI] [Concomitant]
     Dosage: UNK
     Dates: start: 20240627, end: 20240708
  7. ULTRA TART CHERRY EXTRACT [Concomitant]
     Dates: start: 20240627, end: 20240708
  8. PROBIOTICS NOS [Concomitant]
     Active Substance: PROBIOTICS NOS
     Dosage: UNK
     Dates: start: 20240627, end: 20240708
  9. BIOASTIN [Concomitant]
     Dates: start: 20240627, end: 20240708
  10. HERBALS\TURMERIC [Concomitant]
     Active Substance: HERBALS\TURMERIC
     Dosage: UNK
     Dates: start: 20240627, end: 20240708

REACTIONS (2)
  - COVID-19 [Recovering/Resolving]
  - Disease recurrence [Recovering/Resolving]

NARRATIVE: CASE EVENT DATE: 20240703
